FAERS Safety Report 5764403-5 (Version None)
Quarter: 2008Q2

REPORT INFORMATION
  Report Type: 
  Country: None (occurrence: None)
  Receive Date: 20080610
  Receipt Date: 20080602
  Transmission Date: 20081010
  Serious: Yes (Life-Threatening, Hospitalization, Other)
  Sender: FDA-Public Use
  Company Number: SE-ABBOTT-08P-150-0454888-00

PATIENT
  Age: 63 Year
  Sex: Male

DRUGS (4)
  1. ZEMPLAR [Suspect]
     Indication: HYPERPARATHYROIDISM
     Dosage: 5MCG/ML, 2 ML PER WEEK
     Dates: start: 20080214
  2. ASPIRIN [Concomitant]
     Indication: ANGINA UNSTABLE
     Route: 048
     Dates: start: 20080527, end: 20080601
  3. CLOPIDOGREL [Concomitant]
     Indication: ANGINA UNSTABLE
     Route: 048
     Dates: start: 20080529, end: 20080601
  4. HEPARIN-FRACTION, SODIUM SALT [Concomitant]
     Indication: ANGINA UNSTABLE
     Dosage: 5000 E, ONCE DAILY INJECTION
     Route: 050
     Dates: start: 20080526

REACTIONS (4)
  - ANGINA UNSTABLE [None]
  - DIZZINESS [None]
  - FATIGUE [None]
  - GASTROINTESTINAL HAEMORRHAGE [None]
